FAERS Safety Report 15712396 (Version 2)
Quarter: 2018Q4

REPORT INFORMATION
  Report Type: Spontaneous
  Country: US (occurrence: US)
  Receive Date: 20181212
  Receipt Date: 20181223
  Transmission Date: 20190205
  Serious: No
  Sender: FDA-Public Use
  Company Number: US-AMGEN-USASP2018175077

PATIENT
  Age: 66 Year
  Sex: Female
  Weight: 64.4 kg

DRUGS (17)
  1. AMLODIPINE [Concomitant]
     Active Substance: AMLODIPINE BESYLATE
     Dosage: 5-10 MG, CAPSULE
  2. BUTALBITAL-A [Concomitant]
     Dosage: 50-325 MG, TABLET
  3. CYCLOBENZAPRIN [Concomitant]
     Active Substance: CYCLOBENZAPRINE
     Dosage: 10 MG, TABLET
  4. VITAMIN B12 [Concomitant]
     Active Substance: CYANOCOBALAMIN
     Dosage: 100 MUG, TABLET
  5. REPATHA [Suspect]
     Active Substance: EVOLOCUMAB
     Indication: HYPERCHOLESTEROLAEMIA
     Dosage: 140 MG/ML, Q2WK
     Route: 058
     Dates: start: 20181112
  6. AVASTIN [Concomitant]
     Active Substance: BEVACIZUMAB
     Dosage: 400 MG/16ML, SOLUTION
  7. CALCIUM [Concomitant]
     Active Substance: CALCIUM
     Dosage: 500 MG, TABLET
  8. FIBER [Concomitant]
     Active Substance: PSYLLIUM HUSK
     Dosage: 2 G, UNK
  9. AMITRIPTYLIN [Concomitant]
     Active Substance: AMITRIPTYLINE
     Dosage: 100 MG, TABLET
  10. COD LIVER OIL [Concomitant]
     Active Substance: COD LIVER OIL
     Dosage: UNK
  11. CRANBERRY. [Concomitant]
     Active Substance: CRANBERRY
     Dosage: 450 MG, TABLET
  12. DRAMAMINE [Concomitant]
     Active Substance: DIMENHYDRINATE
     Dosage: 50 MG, UNK
  13. IBUPROFEN. [Concomitant]
     Active Substance: IBUPROFEN
     Dosage: 800 MG, TABLET
  14. VITAMIN D3 [Concomitant]
     Active Substance: CHOLECALCIFEROL
     Dosage: 10000 UNIT, CAPSULE
  15. MAGNESIUM [Concomitant]
     Active Substance: MAGNESIUM
     Dosage: 400 MG, TABLET
  16. COQ10 [Concomitant]
     Active Substance: UBIDECARENONE
     Dosage: 60 MG, CAPSULE
  17. FISH OIL [Concomitant]
     Active Substance: FISH OIL
     Dosage: 1200 MG, CAPSULE

REACTIONS (1)
  - Rhinorrhoea [Not Recovered/Not Resolved]
